FAERS Safety Report 5644121-4 (Version None)
Quarter: 2008Q1

REPORT INFORMATION
  Report Type: 
  Country: None (occurrence: None)
  Receive Date: 20080226
  Receipt Date: 20080214
  Transmission Date: 20080703
  Serious: Yes (Hospitalization)
  Sender: FDA-Public Use
  Company Number: A0707920A

PATIENT
  Age: 36 Year
  Sex: Female
  Weight: 86.8185 kg

DRUGS (2)
  1. PAZOPANIB TABLET (PAZOPANIB) [Suspect]
     Indication: CERVIX CARCINOMA
     Dosage: 800 MG/ PER DAY / ORAL
     Route: 048
     Dates: start: 20080124
  2. LAPATINIB TABLET (LAPATINIB) [Suspect]
     Indication: CERVIX CARCINOMA
     Dosage: 1500 MG/PER DAY/ORAL
     Route: 048
     Dates: start: 20080124

REACTIONS (8)
  - ABASIA [None]
  - CARDIAC ARREST [None]
  - FATIGUE [None]
  - FOOD INTOLERANCE [None]
  - NAUSEA [None]
  - PERICARDIAL EFFUSION [None]
  - PLEURAL EFFUSION [None]
  - VOMITING [None]
